FAERS Safety Report 9779694 (Version 4)
Quarter: 2014Q1

REPORT INFORMATION
  Report Type: Report from Study
  Country: US (occurrence: US)
  Receive Date: 20131223
  Receipt Date: 20140304
  Transmission Date: 20141002
  Serious: Yes (Hospitalization, Other)
  Sender: FDA-Public Use
  Company Number: US-GILEAD-2013-0090353

PATIENT
  Sex: Female

DRUGS (1)
  1. RANOLAZINE [Suspect]

REACTIONS (2)
  - Epilepsy [Not Recovered/Not Resolved]
  - Dysarthria [Unknown]
